FAERS Safety Report 8468737 (Version 9)
Quarter: 2012Q4

REPORT INFORMATION
  Report Type: 
  Country: US (occurrence: US)
  Receive Date: 20120320
  Receipt Date: 20121031
  Transmission Date: 20130627
  Serious: Yes (Hospitalization, Other)
  Sender: FDA-Public Use
  Company Number: US-ASTRAZENECA-2011SE32269

PATIENT
  Age: 59 Year
  Sex: Female
  Weight: 67.1 kg

DRUGS (32)
  1. NEXIUM [Suspect]
     Indication: GASTROOESOPHAGEAL REFLUX DISEASE
     Route: 048
     Dates: start: 2002, end: 2009
  2. NEXIUM [Suspect]
     Indication: GASTROOESOPHAGEAL REFLUX DISEASE
     Dosage: ONCE A DAY EVERYDAY
     Route: 048
     Dates: start: 2004, end: 2008
  3. NEXIUM [Suspect]
     Indication: GASTROOESOPHAGEAL REFLUX DISEASE
     Route: 048
     Dates: start: 20060925
  4. TUMS [Concomitant]
  5. MILK OF MAGNESIA [Concomitant]
  6. MEDROL DOSEPAK [Concomitant]
     Indication: OEDEMA PERIPHERAL
     Dates: start: 2003
  7. MEDROL DOSEPAK [Concomitant]
     Indication: JOINT SWELLING
     Dates: start: 2003
  8. AMITRIPTYLINE HCL [Concomitant]
     Dates: start: 20080317
  9. CLONAZEPAM/KLONOPIN [Concomitant]
     Dates: start: 19961227
  10. CLONAZEPAM/KLONOPIN [Concomitant]
     Dosage: 0.5 MG 1 HS AND PRN
     Dates: start: 20060925
  11. CLONAZEPAM/KLONOPIN [Concomitant]
     Dates: start: 20080317
  12. LASIX [Concomitant]
     Dates: start: 19961227
  13. LASIX [Concomitant]
     Dates: start: 20080317
  14. SPIRONOLACTONE/ALDACTONE [Concomitant]
     Dates: start: 19961227
  15. SPIRONOLACTONE/ALDACTONE [Concomitant]
     Dates: start: 20060925
  16. SPIRONOLACTONE/ALDACTONE [Concomitant]
     Dates: start: 20080317
  17. SYNTHROID [Concomitant]
     Dates: start: 19961227
  18. SYNTHROID [Concomitant]
     Dates: start: 20060925
  19. SYNTHROID [Concomitant]
     Dates: start: 20080317
  20. ACTIGALL [Concomitant]
     Dates: start: 20060925
  21. ACTIGALL [Concomitant]
     Dates: start: 20080317
  22. ESTRACE [Concomitant]
     Dates: start: 20080317
  23. PREMARIN [Concomitant]
     Dates: start: 19961227
  24. PREMARIN [Concomitant]
     Dates: start: 20060925
  25. LEXAPRO [Concomitant]
     Dates: start: 20060925
  26. ZETIA [Concomitant]
     Dates: start: 20060925
  27. FOSAMAX [Concomitant]
     Dosage: 70 MG PER WEEK
     Dates: start: 20060925
  28. AMITRIPTYLINE [Concomitant]
     Dates: start: 20060925
  29. AMITRIPTYLINE [Concomitant]
     Dates: start: 20060925
  30. ELAVIL [Concomitant]
     Dates: start: 19961227
  31. PROVERA [Concomitant]
     Dosage: 10 MG FROM FIRST THROUGH THE  TENTH DAY OF THE MONTH
     Dates: start: 19961227
  32. PREVACID [Concomitant]
     Dates: start: 19961227

REACTIONS (9)
  - Lower limb fracture [Unknown]
  - Ankle fracture [Unknown]
  - Fall [Unknown]
  - Osteoporosis [Unknown]
  - Osteoarthritis [Unknown]
  - Pain [Unknown]
  - Cellulitis [Unknown]
  - Depression [Unknown]
  - Oedema peripheral [Unknown]
